FAERS Safety Report 7987535-X (Version None)
Quarter: 2011Q4

REPORT INFORMATION
  Report Type: 
  Country: None (occurrence: None)
  Receive Date: 20111216
  Receipt Date: 20111214
  Transmission Date: 20120403
  Serious: Yes (Other)
  Sender: FDA-Public Use
  Company Number: PHHY2010CA79874

PATIENT
  Sex: Female

DRUGS (7)
  1. LIPITOR [Concomitant]
     Dosage: UNK UKN, UNK
  2. IMOVANE [Concomitant]
     Dosage: UNK UKN, UNK
  3. MULTI-VITAMIN [Concomitant]
     Dosage: UNK UKN, UNK
  4. ZOLEDRONOC ACID [Suspect]
     Dosage: 5 MG, UNK
     Route: 042
     Dates: start: 20111114
  5. CALCIUM CITRATE W/VITAMIN D NOS [Suspect]
     Dosage: UNK UKN, UNK
  6. ACETAMINOPHEN [Concomitant]
     Dosage: UNK UKN, UNK
  7. ZOLEDRONOC ACID [Suspect]
     Indication: OSTEOPOROSIS
     Dosage: 5 MG, UNK
     Route: 042
     Dates: start: 20100101, end: 20101119

REACTIONS (5)
  - PAIN [None]
  - MYALGIA [None]
  - MIGRAINE [None]
  - NAUSEA [None]
  - BACK PAIN [None]
